FAERS Safety Report 4962921-0 (Version None)
Quarter: 2006Q1

REPORT INFORMATION
  Report Type: 
  Country: None (occurrence: None)
  Receive Date: 20060331
  Receipt Date: 20060314
  Transmission Date: 20060701
  Serious: Yes (Hospitalization)
  Sender: FDA-Public Use
  Company Number: US200603003734

PATIENT
  Sex: Male

DRUGS (2)
  1. HUMULIN 70/30 [Suspect]
     Dosage: SEE IMAGE
  2. HUMULIN 70/30 PEN (HUMULIN 70/30 PEN) PEN, DISPOSABLE [Concomitant]

REACTIONS (3)
  - BLOOD GLUCOSE DECREASED [None]
  - KNEE ARTHROPLASTY [None]
  - PHARMACEUTICAL PRODUCT COMPLAINT [None]
